FAERS Safety Report 11059429 (Version 2)
Quarter: 2015Q2

REPORT INFORMATION
  Report Type: Report from Study
  Country: BE (occurrence: BE)
  Receive Date: 20150423
  Receipt Date: 20150508
  Transmission Date: 20150821
  Serious: Yes (Hospitalization)
  Sender: FDA-Public Use
  Company Number: BE-ACTELION-A-CH2015-116864

PATIENT
  Age: 12 Year
  Weight: 34 kg

DRUGS (6)
  1. OMEPRAZOL [Concomitant]
     Active Substance: OMEPRAZOLE
     Dosage: 10 MG, BID
     Dates: start: 200711
  2. LASIX [Concomitant]
     Active Substance: FUROSEMIDE
     Dosage: 10 MG, BID
     Dates: start: 200711
  3. TRACLEER [Suspect]
     Active Substance: BOSENTAN\BOSENTAN MONOHYDRATE
     Indication: CARDIAC SEPTAL DEFECT RESIDUAL SHUNT
     Dosage: 31.25 MG, BID
     Route: 048
     Dates: start: 201212
  4. SOTALOL. [Concomitant]
     Active Substance: SOTALOL
     Dosage: 40 MG, BID
     Dates: start: 200711
  5. ALDACTONE [Concomitant]
     Active Substance: SPIRONOLACTONE
     Dosage: 10 MG, BID
     Dates: start: 200711
  6. MAREVAN [Concomitant]
     Active Substance: WARFARIN SODIUM
     Dosage: 1.3 MG, UNK
     Dates: start: 200711

REACTIONS (4)
  - Supraventricular tachycardia [Recovered/Resolved]
  - Acquired diaphragmatic eventration [Unknown]
  - Left ventricular hypertrophy [Unknown]
  - Inferior vena cava stenosis [Unknown]
